FAERS Safety Report 8575927-X (Version None)
Quarter: 2012Q2

REPORT INFORMATION
  Report Type: 
  Country: None (occurrence: None)
  Receive Date: 20120423
  Receipt Date: 20100415
  Transmission Date: 20120825
  Serious: Yes (Other)
  Sender: FDA-Public Use
  Company Number: PHEH2010US02175

PATIENT
  Age: 15 Year
  Sex: Male

DRUGS (4)
  1. EXJADE [Suspect]
     Indication: SICKLE CELL ANAEMIA
     Dosage: 1500 MG, QD, ORAL; 2000 MG, QD, ORAL
     Route: 048
     Dates: start: 20060101
  2. EXJADE [Suspect]
     Indication: IRON OVERLOAD
     Dosage: 1500 MG, QD, ORAL; 2000 MG, QD, ORAL
     Route: 048
     Dates: start: 20060101
  3. EXJADE [Suspect]
     Indication: SICKLE CELL ANAEMIA
     Dosage: 1500 MG, QD, ORAL; 2000 MG, QD, ORAL
     Route: 048
     Dates: end: 20100310
  4. EXJADE [Suspect]
     Indication: IRON OVERLOAD
     Dosage: 1500 MG, QD, ORAL; 2000 MG, QD, ORAL
     Route: 048
     Dates: end: 20100310

REACTIONS (1)
  - DEAFNESS [None]
